FAERS Safety Report 19573129 (Version 2)
Quarter: 2021Q3

REPORT INFORMATION
  Report Type: Spontaneous
  Country: US (occurrence: US)
  Receive Date: 20210716
  Receipt Date: 20210824
  Transmission Date: 20211014
  Serious: Yes (Other)
  Sender: FDA-Public Use
  Company Number: US-BAUSCH-BL-2021-025055

PATIENT
  Age: 50 Year
  Sex: Female
  Weight: 86.18 kg

DRUGS (5)
  1. PFIZER?BIONTECH COVID?19 VACCINE [Suspect]
     Active Substance: TOZINAMERAN
     Dosage: SECOND DOSE
     Route: 065
     Dates: start: 20210316, end: 20210316
  2. DUOBRII [Suspect]
     Active Substance: HALOBETASOL PROPIONATE\TAZAROTENE
     Indication: PSORIASIS
     Dosage: STRENGTH: 0.01%/ 0.045%. USING 100G TUBE AND GOT PRESCRIPTION FOR 3 100G TUBES FOR 30 DAYS
     Route: 065
  3. ZYRTEC [Concomitant]
     Active Substance: CETIRIZINE HYDROCHLORIDE
     Indication: PRODUCT USED FOR UNKNOWN INDICATION
  4. CIMZIA [Concomitant]
     Active Substance: CERTOLIZUMAB PEGOL
     Indication: PSORIASIS
     Dosage: 400 MG TWICE A MONTH
  5. PFIZER?BIONTECH COVID?19 VACCINE [Suspect]
     Active Substance: TOZINAMERAN
     Indication: COVID-19 PROPHYLAXIS
     Dosage: FIRST DOSE
     Route: 065
     Dates: start: 20210225, end: 20210225

REACTIONS (2)
  - Psoriatic arthropathy [Unknown]
  - Psoriasis [Unknown]
